FAERS Safety Report 15900123 (Version 2)
Quarter: 2019Q2

REPORT INFORMATION
  Report Type: Report from Study
  Country: IT (occurrence: IT)
  Receive Date: 20190201
  Receipt Date: 20190412
  Transmission Date: 20190711
  Serious: Yes (Hospitalization)
  Sender: FDA-Public Use
  Company Number: IT-PFIZER INC-2019045755

PATIENT
  Age: 75 Year
  Sex: Male
  Weight: 57 kg

DRUGS (11)
  1. FLUOROURACIL. [Suspect]
     Active Substance: FLUOROURACIL
     Dosage: 652 MG, EVERY 2 WEEKS
     Route: 040
     Dates: start: 20181107, end: 20181107
  2. ONDANSETRON [Concomitant]
     Active Substance: ONDANSETRON
     Indication: PROPHYLAXIS
     Dosage: 8 MG, UNK
     Dates: start: 20181107
  3. AFLIBERCEPT [Suspect]
     Active Substance: AFLIBERCEPT
     Dosage: 228 MG, EVERY 2 WEEKS
     Route: 042
     Dates: start: 20181107, end: 20181107
  4. DEXAMETHASONE. [Concomitant]
     Active Substance: DEXAMETHASONE
     Indication: PROPHYLAXIS
     Dosage: 8 MG, UNK
     Dates: start: 20181107
  5. AFLIBERCEPT [Suspect]
     Active Substance: AFLIBERCEPT
     Dosage: 228 MG, EVERY 2 WEEKS
     Route: 042
     Dates: start: 20181205, end: 20181205
  6. IRINOTECAN HCL [Suspect]
     Active Substance: IRINOTECAN HYDROCHLORIDE
     Dosage: 293.4 MG, EVERY 2 WEEKS
     Route: 042
     Dates: start: 20181107, end: 20181107
  7. FLUOROURACIL. [Suspect]
     Active Substance: FLUOROURACIL
     Dosage: 3912 MG, CYCLIC
     Route: 042
     Dates: start: 20181205, end: 20181205
  8. FLUOROURACIL. [Suspect]
     Active Substance: FLUOROURACIL
     Dosage: 3912 MG, CYCLIC
     Route: 042
     Dates: start: 20181107, end: 20181107
  9. MUGARD [BENZYL ALCOHOL;CARBOMER;CITRIC ACID;GLYCEROL;PHOSPHORIC ACID;P [Concomitant]
     Indication: STOMATITIS
     Dosage: 5 ML, UNK
     Route: 048
     Dates: start: 20181205
  10. IRINOTECAN HCL [Suspect]
     Active Substance: IRINOTECAN HYDROCHLORIDE
     Dosage: 293.4 MG, EVERY 2 WEEKS
     Route: 042
     Dates: start: 20181205, end: 20181205
  11. FLUOROURACIL. [Suspect]
     Active Substance: FLUOROURACIL
     Dosage: 652 MG, EVERY 2 WEEKS
     Route: 040
     Dates: start: 20181205, end: 20181205

REACTIONS (1)
  - Haematuria [Recovered/Resolved]

NARRATIVE: CASE EVENT DATE: 20181229
